FAERS Safety Report 5802919-3 (Version None)
Quarter: 2008Q2

REPORT INFORMATION
  Report Type: 
  Country: None (occurrence: None)
  Receive Date: 20080627
  Receipt Date: 20080319
  Transmission Date: 20081010
  Serious: Yes (Other)
  Sender: FDA-Public Use
  Company Number: PHEH2008US01590

PATIENT
  Age: 49 Year
  Sex: Female
  Weight: 93 kg

DRUGS (2)
  1. RECLAST [Suspect]
     Indication: OSTEITIS DEFORMANS
     Dosage: 5 MG, ONCE/SINGLE, INFUSION
     Dates: start: 20071221
  2. CALCIUMN WITH VITAMIN D (CALCIUM PHOSPHATE, CALCIUM SODIUM LACTATE, ER [Concomitant]

REACTIONS (6)
  - AGITATION [None]
  - HYPOAESTHESIA [None]
  - HYPOAESTHESIA FACIAL [None]
  - HYPOCALCAEMIA [None]
  - NEUROMYOPATHY [None]
  - PARAESTHESIA [None]
